FAERS Safety Report 9627953 (Version 2)
Quarter: 2014Q1

REPORT INFORMATION
  Report Type: Spontaneous
  Country: ES (occurrence: ES)
  Receive Date: 20131016
  Receipt Date: 20140314
  Transmission Date: 20141002
  Serious: Yes (Life-Threatening, Hospitalization)
  Sender: FDA-Public Use
  Company Number: PHHY2013ES112542

PATIENT
  Age: 70 Year
  Sex: Female

DRUGS (6)
  1. SINTROM [Suspect]
     Indication: CARDIAC VALVE PROSTHESIS USER
     Dosage: UNK UKN, UNK
     Route: 048
     Dates: start: 20060720, end: 20130109
  2. CITALOPRAM [Interacting]
     Indication: DEPRESSION
     Dosage: 20 MG, EVERY 24 HOUR
     Route: 048
     Dates: start: 20121219, end: 20130109
  3. DIGOXIN [Concomitant]
     Indication: ATRIAL FIBRILLATION
     Dosage: 0.25 MG, EVERY 24 HOUR
     Route: 048
     Dates: start: 2006
  4. EXELON [Concomitant]
     Indication: DEMENTIA ALZHEIMER^S TYPE
     Dosage: UNK UKN, UNK
     Route: 062
     Dates: start: 20121219
  5. ISODIUR [Concomitant]
     Indication: CARDIAC FAILURE CONGESTIVE
     Dosage: 10 MG, EVERY 24 HOUR
     Route: 048
     Dates: start: 20121219
  6. RENITEC [Concomitant]
     Indication: HYPERTENSION
     Dosage: 5 MG, EVERY 24 HOUR
     Route: 048
     Dates: start: 2005, end: 20130109

REACTIONS (6)
  - Hydronephrosis [Recovered/Resolved]
  - Coagulation time prolonged [Recovered/Resolved]
  - Pelvic haematoma [Recovered/Resolved]
  - Abdominal wall haematoma [Unknown]
  - Respiratory tract infection [Unknown]
  - Drug interaction [Unknown]
